FAERS Safety Report 25299583 (Version 1)
Quarter: 2025Q2

REPORT INFORMATION
  Report Type: Report from Study
  Country: ES (occurrence: ES)
  Receive Date: 20250512
  Receipt Date: 20250512
  Transmission Date: 20250716
  Serious: Yes (Other)
  Sender: SERVIER
  Company Number: ES-SERVIER-S24015677

PATIENT

DRUGS (2)
  1. VORASIDENIB [Suspect]
     Active Substance: VORASIDENIB
     Indication: Product used for unknown indication
     Route: 048
     Dates: start: 20240904, end: 20241015
  2. VORASIDENIB [Suspect]
     Active Substance: VORASIDENIB
     Dosage: 20 MG, QD
     Route: 048
     Dates: start: 20241227, end: 20250430

REACTIONS (2)
  - Hepatotoxicity [Recovering/Resolving]
  - Hepatic enzyme increased [Unknown]
